FAERS Safety Report 20269499 (Version 10)
Quarter: 2023Q2

REPORT INFORMATION
  Report Type: Spontaneous
  Country: JP (occurrence: JP)
  Receive Date: 20220101
  Receipt Date: 20230626
  Transmission Date: 20230722
  Serious: Yes (Hospitalization, Other)
  Sender: FDA-Public Use
  Company Number: JP-UNITED THERAPEUTICS-UNT-2021-024249

PATIENT
  Age: 4 Year
  Sex: Male
  Weight: 15.5 kg

DRUGS (69)
  1. UNITUXIN [Suspect]
     Active Substance: DINUTUXIMAB
     Indication: Neuroblastoma
     Dosage: UNK, CYCLICAL (CYCLE 1)
     Route: 041
     Dates: start: 20211109, end: 20211112
  2. UNITUXIN [Suspect]
     Active Substance: DINUTUXIMAB
     Dosage: 17.5 MG/M2, CYCLICAL (CYCLE 2)
     Route: 041
     Dates: start: 20211214, end: 20211217
  3. UNITUXIN [Suspect]
     Active Substance: DINUTUXIMAB
     Dosage: UNK, CYCLICAL (CYCLE 3)
     Route: 041
     Dates: start: 20220111, end: 20220114
  4. UNITUXIN [Suspect]
     Active Substance: DINUTUXIMAB
     Dosage: UNK, CYCLICAL (CYCLE 4)
     Route: 041
     Dates: start: 20220215, end: 20220218
  5. UNITUXIN [Suspect]
     Active Substance: DINUTUXIMAB
     Dosage: UNK, CYCLICAL (CYCLE 5)
     Route: 041
     Dates: start: 20220322, end: 20220325
  6. UNITUXIN [Suspect]
     Active Substance: DINUTUXIMAB
     Dosage: UNK, CYCLICAL (CYCLE 6)
     Route: 041
     Dates: start: 20220426, end: 20220429
  7. FILGRASTIM [Suspect]
     Active Substance: FILGRASTIM
     Indication: Neuroblastoma
     Dosage: 5 ?G/KG
     Route: 065
     Dates: start: 20211106, end: 20211119
  8. FILGRASTIM [Suspect]
     Active Substance: FILGRASTIM
     Dosage: UNK
     Route: 065
     Dates: start: 20220108, end: 20220114
  9. FILGRASTIM [Suspect]
     Active Substance: FILGRASTIM
     Dosage: UNK
     Route: 042
     Dates: start: 20220319
  10. TECELEUKIN [Suspect]
     Active Substance: TECELEUKIN
     Indication: Neuroblastoma
     Dosage: 750000 IU
     Route: 041
     Dates: start: 20211207, end: 20211211
  11. TECELEUKIN [Suspect]
     Active Substance: TECELEUKIN
     Dosage: 1000000 IU
     Route: 041
     Dates: start: 20211214, end: 20211218
  12. TECELEUKIN [Suspect]
     Active Substance: TECELEUKIN
     Dosage: UNK
     Route: 041
     Dates: start: 20220208, end: 20220218
  13. TECELEUKIN [Suspect]
     Active Substance: TECELEUKIN
     Dosage: UNK
     Route: 041
     Dates: start: 20220419
  14. MORPHINE HYDROCHLORIDE [Suspect]
     Active Substance: MORPHINE HYDROCHLORIDE
     Indication: Pain
     Dosage: UNK
     Route: 040
     Dates: start: 20211109, end: 20211109
  15. MORPHINE HYDROCHLORIDE [Suspect]
     Active Substance: MORPHINE HYDROCHLORIDE
     Indication: Prophylaxis
     Dosage: UNK
     Route: 040
     Dates: start: 20211214, end: 20211217
  16. FUROSEMIDE [Suspect]
     Active Substance: FUROSEMIDE
     Indication: Oedema
     Dosage: UNK
     Route: 065
     Dates: start: 20211208, end: 20211221
  17. FUROSEMIDE [Suspect]
     Active Substance: FUROSEMIDE
     Indication: Weight increased
     Dosage: 3 MG, BID
     Route: 065
     Dates: start: 20220208, end: 20220208
  18. FUROSEMIDE [Suspect]
     Active Substance: FUROSEMIDE
     Indication: Hypertension
     Dosage: 3 MG, TID
     Route: 065
     Dates: start: 20220209, end: 20220209
  19. FUROSEMIDE [Suspect]
     Active Substance: FUROSEMIDE
     Dosage: 3 MG, QID
     Route: 065
     Dates: start: 20220210, end: 20220211
  20. FUROSEMIDE [Suspect]
     Active Substance: FUROSEMIDE
     Dosage: 3 MG, TID
     Route: 065
     Dates: start: 20220212, end: 20220212
  21. FUROSEMIDE [Suspect]
     Active Substance: FUROSEMIDE
     Dosage: 3 MG, BID
     Route: 065
     Dates: start: 20220215, end: 20220215
  22. FUROSEMIDE [Suspect]
     Active Substance: FUROSEMIDE
     Dosage: 3 MG, QID
     Route: 065
     Dates: start: 20220216, end: 20220219
  23. FUROSEMIDE [Suspect]
     Active Substance: FUROSEMIDE
     Dosage: 5 MG, TID
     Route: 065
     Dates: start: 20220220, end: 20220221
  24. FUROSEMIDE [Suspect]
     Active Substance: FUROSEMIDE
     Dosage: 5 MG, BID
     Route: 065
     Dates: start: 20220222, end: 20220222
  25. FUROSEMIDE [Suspect]
     Active Substance: FUROSEMIDE
     Dosage: 5 MG
     Route: 065
     Dates: start: 20220223, end: 20220223
  26. FUROSEMIDE [Suspect]
     Active Substance: FUROSEMIDE
     Dosage: 3 MG, BID
     Route: 041
     Dates: start: 20220323, end: 20220323
  27. FUROSEMIDE [Suspect]
     Active Substance: FUROSEMIDE
     Dosage: 3 MG, BID
     Route: 041
     Dates: start: 20220419, end: 20220419
  28. FUROSEMIDE [Suspect]
     Active Substance: FUROSEMIDE
     Dosage: 3 MG, QID
     Route: 041
     Dates: start: 20220420, end: 20220423
  29. FUROSEMIDE [Suspect]
     Active Substance: FUROSEMIDE
     Dosage: 3 MG, TID
     Route: 041
     Dates: start: 20220424, end: 20220424
  30. FUROSEMIDE [Suspect]
     Active Substance: FUROSEMIDE
     Dosage: 3 MG, TID
     Route: 041
     Dates: start: 20220426, end: 20220426
  31. FUROSEMIDE [Suspect]
     Active Substance: FUROSEMIDE
     Dosage: 3 MG, QID
     Route: 041
     Dates: start: 20220427, end: 20220427
  32. FUROSEMIDE [Suspect]
     Active Substance: FUROSEMIDE
     Dosage: 3 MG, BID
     Route: 041
     Dates: start: 20220504, end: 20220504
  33. FUROSEMIDE [Suspect]
     Active Substance: FUROSEMIDE
     Dosage: 3 MG, QD
     Route: 065
     Dates: start: 20220505, end: 20220505
  34. ACETAMINOPHEN [Suspect]
     Active Substance: ACETAMINOPHEN
     Indication: Prophylaxis
     Dosage: UNK
     Route: 065
     Dates: start: 20211109, end: 20211113
  35. MAGNESIUM OXIDE [Suspect]
     Active Substance: MAGNESIUM OXIDE
     Indication: Product used for unknown indication
     Dosage: UNK
     Route: 065
     Dates: start: 20211111, end: 20211111
  36. LOCOID [Concomitant]
     Active Substance: HYDROCORTISONE BUTYRATE
     Indication: Pruritus
     Dosage: UNK
     Route: 062
     Dates: start: 20220208, end: 20220217
  37. LOCOID [Concomitant]
     Active Substance: HYDROCORTISONE BUTYRATE
     Indication: Eczema
     Dosage: UNK
     Route: 062
     Dates: start: 20220322, end: 20220325
  38. LOCOID [Concomitant]
     Active Substance: HYDROCORTISONE BUTYRATE
     Indication: Prophylaxis
     Dosage: UNK
     Route: 062
     Dates: start: 20220422, end: 20220501
  39. LOCOID [Concomitant]
     Active Substance: HYDROCORTISONE BUTYRATE
     Dosage: UNK
     Route: 062
  40. GLYCOSAMINOGLYCANS [Concomitant]
     Active Substance: GLYCOSAMINOGLYCANS
     Indication: Dry skin
     Dosage: UNK
     Route: 062
     Dates: start: 20220208, end: 20220217
  41. GLYCOSAMINOGLYCANS [Concomitant]
     Active Substance: GLYCOSAMINOGLYCANS
     Dosage: UNK
     Route: 062
     Dates: start: 20220322, end: 20220325
  42. GLYCOSAMINOGLYCANS [Concomitant]
     Active Substance: GLYCOSAMINOGLYCANS
     Dosage: UNK
     Route: 062
     Dates: start: 20220422, end: 20220501
  43. Azunol [Concomitant]
     Indication: Prophylaxis
     Dosage: UNK
     Route: 062
     Dates: start: 20220208, end: 20220217
  44. Azunol [Concomitant]
     Indication: Lip dry
     Dosage: UNK
     Route: 062
     Dates: start: 20220322, end: 20220325
  45. Azunol [Concomitant]
     Dosage: UNK
     Route: 062
     Dates: start: 20220422, end: 20220501
  46. Azunol [Concomitant]
     Dosage: UNK
     Dates: start: 20211111
  47. MENAQUINONE 6 [Concomitant]
     Active Substance: MENAQUINONE 6
     Indication: Product used for unknown indication
     Dosage: UNK
     Route: 065
     Dates: start: 20220210, end: 20220220
  48. NEO-MINOPHAGEN C [Concomitant]
     Active Substance: AMMONIUM GLYCYRRHIZATE
     Indication: Prophylaxis
     Dosage: UNK
     Route: 042
     Dates: start: 20210211, end: 20210217
  49. NEO-MINOPHAGEN C [Concomitant]
     Active Substance: AMMONIUM GLYCYRRHIZATE
     Indication: Liver disorder
     Dosage: UNK
     Route: 042
     Dates: start: 20211209, end: 20211218
  50. NEO-MINOPHAGEN C [Concomitant]
     Active Substance: AMMONIUM GLYCYRRHIZATE
     Indication: Hepatic function abnormal
     Dosage: UNK
     Route: 042
     Dates: start: 20220217, end: 20220220
  51. NEO-MINOPHAGEN C [Concomitant]
     Active Substance: AMMONIUM GLYCYRRHIZATE
     Dosage: 20 MG/DAY
     Route: 042
     Dates: start: 20220324, end: 20220327
  52. NEO-MINOPHAGEN C [Concomitant]
     Active Substance: AMMONIUM GLYCYRRHIZATE
     Dosage: UNK
     Route: 042
     Dates: start: 20220423, end: 20220501
  53. DIPHENHYDRAMINE [Concomitant]
     Active Substance: DIPHENHYDRAMINE
     Indication: Pruritus
     Dosage: UNK
     Route: 062
     Dates: start: 20220208, end: 20220217
  54. DIPHENHYDRAMINE [Concomitant]
     Active Substance: DIPHENHYDRAMINE
     Dosage: UNK
     Route: 062
  55. DIPHENHYDRAMINE [Concomitant]
     Active Substance: DIPHENHYDRAMINE
     Dosage: UNK
     Route: 062
     Dates: start: 20220422, end: 20220501
  56. MENATETRENONE [Concomitant]
     Active Substance: MENATETRENONE
     Indication: Prophylaxis
     Dosage: UNK
     Route: 065
     Dates: start: 20211111, end: 20211112
  57. MENATETRENONE [Concomitant]
     Active Substance: MENATETRENONE
     Indication: International normalised ratio increased
     Dosage: UNK
     Route: 065
     Dates: start: 20211215, end: 20211220
  58. MENATETRENONE [Concomitant]
     Active Substance: MENATETRENONE
     Indication: Prothrombin level decreased
     Dosage: UNK
     Route: 065
     Dates: start: 20220428, end: 20220501
  59. HYDROXYZINE HYDROCHLORIDE [Concomitant]
     Active Substance: HYDROXYZINE HYDROCHLORIDE
     Indication: Prophylaxis
     Dosage: UNK
     Route: 065
     Dates: start: 20211109, end: 20211113
  60. HYDROXYZINE HYDROCHLORIDE [Concomitant]
     Active Substance: HYDROXYZINE HYDROCHLORIDE
     Dosage: UNK
     Route: 065
     Dates: start: 20211207, end: 20211218
  61. SULFAMETHOXAZOLE\TRIMETHOPRIM [Concomitant]
     Active Substance: SULFAMETHOXAZOLE\TRIMETHOPRIM
     Indication: Prophylaxis
     Dosage: UNK
     Route: 065
  62. MIYA-BM [Concomitant]
     Active Substance: CLOSTRIDIUM BUTYRICUM SPORES STRAIN M-55
     Indication: Prophylaxis
     Dosage: UNK
     Route: 065
     Dates: start: 20211113, end: 20211119
  63. MIYA-BM [Concomitant]
     Active Substance: CLOSTRIDIUM BUTYRICUM SPORES STRAIN M-55
     Indication: Diarrhoea
     Dosage: UNK
     Route: 065
     Dates: start: 20211218, end: 20211221
  64. ZINC OXIDE [Concomitant]
     Active Substance: ZINC OXIDE
     Indication: Prophylaxis
     Dosage: UNK
     Route: 061
     Dates: start: 20211113
  65. NADIFLOXACIN [Concomitant]
     Active Substance: NADIFLOXACIN
     Indication: Prophylaxis
     Dosage: UNK
     Route: 057
     Dates: start: 20211114, end: 20211116
  66. HEPARINOID [Concomitant]
     Indication: Prophylaxis
     Dosage: UNK
     Route: 065
  67. DIPHENHYDRAMINE HYDROCHLORIDE\HYDROCORTISONE ACETATE\NEOMYCIN SULFATE [Concomitant]
     Active Substance: DIPHENHYDRAMINE HYDROCHLORIDE\HYDROCORTISONE ACETATE\NEOMYCIN SULFATE
     Indication: Pruritus
     Dosage: UNK
     Route: 065
     Dates: start: 20211111
  68. NICARDIPINE HYDROCHLORIDE [Concomitant]
     Active Substance: NICARDIPINE HYDROCHLORIDE
     Indication: Hypertension
     Dosage: UNK
     Route: 065
     Dates: start: 20211222, end: 20211224
  69. NIFEDIPINE [Concomitant]
     Active Substance: NIFEDIPINE
     Indication: Hypertension
     Dosage: UNK
     Route: 065
     Dates: start: 20211224, end: 20211225

REACTIONS (157)
  - Neuroblastoma recurrent [Unknown]
  - Hypertension [Recovered/Resolved]
  - Hypoxia [Recovered/Resolved]
  - Hypoxia [Recovered/Resolved]
  - Hypoxia [Recovered/Resolved]
  - Hypoxia [Recovered/Resolved]
  - Hypoxia [Recovered/Resolved]
  - Hypoxia [Recovered/Resolved]
  - Ascites [Recovered/Resolved]
  - Hypokalaemia [Recovered/Resolved]
  - Hypokalaemia [Recovered/Resolved]
  - Hypokalaemia [Recovered/Resolved]
  - Exophthalmos [Unknown]
  - Hypertension [Recovered/Resolved]
  - Hypertension [Recovered/Resolved]
  - Oedema [Recovered/Resolved]
  - Oedema [Recovered/Resolved]
  - Oedema [Recovered/Resolved]
  - Oedema [Recovered/Resolved]
  - Oedema [Recovered/Resolved]
  - Urinary retention [Recovered/Resolved]
  - Liver disorder [Recovered/Resolved]
  - Oxygen saturation decreased [Recovered/Resolved]
  - Diarrhoea [Recovered/Resolved]
  - Diarrhoea [Recovered/Resolved]
  - Fibrin degradation products increased [Recovered/Resolved]
  - Fibrin degradation products increased [Recovered/Resolved]
  - Fibrin degradation products increased [Recovered/Resolved]
  - Fibrin degradation products increased [Recovered/Resolved]
  - Fibrin D dimer increased [Recovered/Resolved]
  - Fibrin D dimer increased [Recovered/Resolved]
  - Fibrin D dimer increased [Recovered/Resolved]
  - Fibrin D dimer increased [Recovered/Resolved]
  - Fibrin D dimer increased [Recovered/Resolved]
  - Fibrin D dimer increased [Recovered/Resolved]
  - C-reactive protein increased [Recovered/Resolved]
  - C-reactive protein increased [Recovered/Resolved]
  - C-reactive protein increased [Recovered/Resolved]
  - C-reactive protein increased [Recovered/Resolved]
  - C-reactive protein increased [Recovered/Resolved]
  - C-reactive protein increased [Recovered/Resolved]
  - Pruritus [Recovered/Resolved]
  - Pruritus [Recovered/Resolved]
  - Pruritus [Recovered/Resolved]
  - Pruritus [Recovered/Resolved]
  - Pruritus [Recovered/Resolved]
  - Pruritus [Recovered/Resolved]
  - Weight increased [Recovered/Resolved]
  - Weight increased [Recovered/Resolved]
  - Weight increased [Recovered/Resolved]
  - Weight increased [Recovered/Resolved]
  - Weight increased [Recovered/Resolved]
  - Eye pain [Recovered/Resolved]
  - Blood albumin decreased [Recovered/Resolved]
  - Hyponatraemia [Recovered/Resolved]
  - Hyponatraemia [Recovered/Resolved]
  - Anaemia [Recovered/Resolved]
  - Anaemia [Recovered/Resolved]
  - Anaemia [Recovered/Resolved]
  - Cough [Recovered/Resolved]
  - Rash vesicular [Recovered/Resolved]
  - Hypoalbuminaemia [Recovered/Resolved]
  - Hypoalbuminaemia [Recovered/Resolved]
  - Hypoalbuminaemia [Recovered/Resolved]
  - Hypoalbuminaemia [Recovered/Resolved]
  - Protein total decreased [Recovered/Resolved]
  - Blood lactate dehydrogenase increased [Recovered/Resolved]
  - Blood lactate dehydrogenase increased [Recovered/Resolved]
  - Gastroenteritis [Recovering/Resolving]
  - Urine output decreased [Unknown]
  - Pain in extremity [Recovered/Resolved]
  - Pain in extremity [Recovered/Resolved]
  - Pain in extremity [Recovered/Resolved]
  - Pain in extremity [Recovered/Resolved]
  - Pain in extremity [Recovered/Resolved]
  - Decreased appetite [Recovered/Resolved]
  - Decreased appetite [Recovered/Resolved]
  - Decreased appetite [Recovered/Resolved]
  - Decreased appetite [Recovered/Resolved]
  - Decreased appetite [Recovered/Resolved]
  - Prothrombin level decreased [Recovered/Resolved]
  - Prothrombin level decreased [Recovered/Resolved]
  - Prothrombin level decreased [Recovered/Resolved]
  - Prothrombin level decreased [Recovered/Resolved]
  - Abdominal pain [Recovered/Resolved]
  - Abdominal pain [Recovered/Resolved]
  - Pyrexia [Recovered/Resolved]
  - Pyrexia [Recovered/Resolved]
  - Pyrexia [Recovered/Resolved]
  - Pyrexia [Recovered/Resolved]
  - Pyrexia [Recovered/Resolved]
  - Hypoproteinaemia [Recovered/Resolved]
  - Hypoproteinaemia [Recovered/Resolved]
  - Hypoproteinaemia [Recovered/Resolved]
  - Hypoproteinaemia [Recovered/Resolved]
  - Hypoproteinaemia [Recovered/Resolved]
  - Hypoproteinaemia [Recovered/Resolved]
  - Gamma-glutamyltransferase increased [Recovered/Resolved]
  - Gamma-glutamyltransferase increased [Recovering/Resolving]
  - Gamma-glutamyltransferase increased [Recovered/Resolved]
  - Gamma-glutamyltransferase increased [Not Recovered/Not Resolved]
  - Gamma-glutamyltransferase increased [Recovered/Resolved]
  - Gamma-glutamyltransferase increased [Recovered/Resolved]
  - White blood cell count increased [Recovered/Resolved]
  - White blood cell count increased [Recovered/Resolved]
  - White blood cell count increased [Recovered/Resolved]
  - White blood cell count increased [Recovered/Resolved]
  - Platelet count decreased [Recovered/Resolved]
  - Platelet count decreased [Recovered/Resolved]
  - Platelet count decreased [Recovered/Resolved]
  - Platelet count decreased [Recovered/Resolved]
  - Platelet count decreased [Recovered/Resolved]
  - Platelet count decreased [Recovered/Resolved]
  - Blood fibrinogen increased [Recovered/Resolved]
  - Blood fibrinogen increased [Recovered/Resolved]
  - Blood fibrinogen increased [Recovered/Resolved]
  - Blood fibrinogen increased [Recovered/Resolved]
  - Blood fibrinogen increased [Recovered/Resolved]
  - Blood fibrinogen increased [Recovered/Resolved]
  - Eosinophil count increased [Recovered/Resolved]
  - Eosinophil count increased [Recovered/Resolved]
  - Eosinophil count increased [Recovered/Resolved]
  - Eosinophil count increased [Recovered/Resolved]
  - Eosinophil count increased [Recovered/Resolved]
  - Eosinophil count increased [Recovered/Resolved]
  - Neutrophil count decreased [Recovered/Resolved]
  - Neutrophil count decreased [Recovered/Resolved]
  - Neutrophil count decreased [Recovered/Resolved]
  - Neutrophil count decreased [Recovered/Resolved]
  - Neutrophil count decreased [Recovered/Resolved]
  - Neutrophil count decreased [Recovered/Resolved]
  - Neutrophil count decreased [Recovered/Resolved]
  - Aspartate aminotransferase increased [Recovered/Resolved]
  - Aspartate aminotransferase increased [Recovered/Resolved]
  - Aspartate aminotransferase increased [Recovered/Resolved]
  - Aspartate aminotransferase increased [Recovered/Resolved]
  - Aspartate aminotransferase increased [Recovered/Resolved]
  - Aspartate aminotransferase increased [Recovered/Resolved]
  - Alanine aminotransferase increased [Recovered/Resolved]
  - Alanine aminotransferase increased [Recovered/Resolved]
  - Alanine aminotransferase increased [Recovered/Resolved]
  - Alanine aminotransferase increased [Recovered/Resolved]
  - Alanine aminotransferase increased [Recovered/Resolved]
  - Alanine aminotransferase increased [Recovered/Resolved]
  - Blood creatinine increased [Recovered/Resolved]
  - Blood creatinine increased [Recovered/Resolved]
  - Blood creatinine increased [Recovered/Resolved]
  - Malaise [Recovered/Resolved]
  - Malaise [Recovered/Resolved]
  - Malaise [Recovered/Resolved]
  - Malaise [Recovered/Resolved]
  - International normalised ratio increased [Recovered/Resolved]
  - International normalised ratio increased [Recovered/Resolved]
  - International normalised ratio increased [Recovered/Resolved]
  - International normalised ratio increased [Recovered/Resolved]
  - Hypomagnesaemia [Recovered/Resolved]
  - Visual acuity reduced [Unknown]

NARRATIVE: CASE EVENT DATE: 20211109
